FAERS Safety Report 8851795 (Version 1)
Quarter: 2012Q4

REPORT INFORMATION
  Report Type: 
  Country: US (occurrence: US)
  Receive Date: 20121022
  Receipt Date: 20121022
  Transmission Date: 20130627
  Serious: No
  Sender: FDA-Public Use
  Company Number: US-PFIZER INC-2012260721

PATIENT

DRUGS (2)
  1. PRISTIQ [Suspect]
     Dosage: 50 mg, UNK
  2. PRISTIQ [Suspect]
     Dosage: 100 mg, UNK

REACTIONS (2)
  - Drug effect incomplete [Unknown]
  - Drug intolerance [Unknown]
